FAERS Safety Report 12197784 (Version 1)
Quarter: 2016Q1

REPORT INFORMATION
  Report Type: Spontaneous
  Country: FR (occurrence: FR)
  Receive Date: 20160322
  Receipt Date: 20160322
  Transmission Date: 20160526
  Serious: Yes (Hospitalization)
  Sender: FDA-Public Use
  Company Number: FR-ASTRAZENECA-2016SE30079

PATIENT
  Age: 63 Year
  Sex: Female

DRUGS (18)
  1. SERETIDE [Suspect]
     Active Substance: FLUTICASONE FUROATE\SALMETEROL XINAFOATE
     Route: 065
  2. LORAZEPAM. [Concomitant]
     Active Substance: LORAZEPAM
  3. CONTRAMAL [Concomitant]
     Active Substance: TRAMADOL HYDROCHLORIDE
     Dosage: IF NECESSARY
  4. LANTUS SOLOSTAR [Concomitant]
     Active Substance: INSULIN GLARGINE
     Dates: start: 201504
  5. EZETROL [Concomitant]
     Active Substance: EZETIMIBE
  6. UVEDOSE [Concomitant]
     Active Substance: CHOLECALCIFEROL
     Dosage: 1 DF EVERY TWO MONTHS
  7. SPIRIVA [Suspect]
     Active Substance: TIOTROPIUM BROMIDE MONOHYDRATE
     Route: 065
  8. VICTOZA [Concomitant]
     Active Substance: LIRAGLUTIDE
     Dates: end: 201504
  9. BISOPROLOL [Concomitant]
     Active Substance: BISOPROLOL
  10. GABAPENTIN. [Concomitant]
     Active Substance: GABAPENTIN
  11. OXEOL [Concomitant]
     Active Substance: BAMBUTEROL HYDROCHLORIDE
  12. PERINDOPRIL [Concomitant]
     Active Substance: PERINDOPRIL
     Dosage: 1 DF OF 1.25MG/5MG IN THE MORNING
  13. ALLOPURINOL. [Concomitant]
     Active Substance: ALLOPURINOL
  14. ATORVASTATIN [Concomitant]
     Active Substance: ATORVASTATIN
  15. METOCLOPRAMIDE. [Concomitant]
     Active Substance: METOCLOPRAMIDE
  16. INEXIUM [Suspect]
     Active Substance: ESOMEPRAZOLE
     Route: 048
  17. DOLIPRANE [Concomitant]
     Active Substance: ACETAMINOPHEN
  18. PERINDOPRIL [Concomitant]
     Active Substance: PERINDOPRIL

REACTIONS (3)
  - Anaemia [Unknown]
  - Impaired healing [Recovered/Resolved]
  - Haemorrhage [Recovered/Resolved]

NARRATIVE: CASE EVENT DATE: 20150414
